FAERS Safety Report 7819919-4 (Version None)
Quarter: 2011Q4

REPORT INFORMATION
  Report Type: 
  Country: None (occurrence: None)
  Receive Date: 20111018
  Receipt Date: 20110712
  Transmission Date: 20120403
  Serious: No
  Sender: FDA-Public Use
  Company Number: US-ASTRAZENECA-2011SE41640

PATIENT
  Sex: Female

DRUGS (1)
  1. SYMBICORT [Suspect]
     Indication: ASTHMA
     Dosage: 80/4.5 ONE PUFF TWO TIMES A DAY
     Route: 055

REACTIONS (5)
  - VOCAL CORD DISORDER [None]
  - OROPHARYNGEAL PAIN [None]
  - CHEILITIS [None]
  - ALLERGY TO CHEMICALS [None]
  - DERMATITIS CONTACT [None]
